FAERS Safety Report 7357224-3 (Version None)
Quarter: 2011Q1

REPORT INFORMATION
  Report Type: 
  Country: None (occurrence: None)
  Receive Date: 20110317
  Receipt Date: 20110315
  Transmission Date: 20110831
  Serious: No
  Sender: FDA-Public Use
  Company Number: US-PFIZER INC-2011057190

PATIENT
  Sex: Male

DRUGS (2)
  1. PRISTIQ [Suspect]
     Dosage: 50 MG, 2X/DAY
  2. PRISTIQ [Suspect]
     Dosage: 50 MG, 1X/DAY

REACTIONS (3)
  - DRUG INTOLERANCE [None]
  - SOMNOLENCE [None]
  - NAUSEA [None]
